FAERS Safety Report 4495486-0 (Version None)
Quarter: 2004Q4

REPORT INFORMATION
  Report Type: 
  Country: None (occurrence: None)
  Receive Date: 20041108
  Receipt Date: 20041028
  Transmission Date: 20050328
  Serious: Yes (Other)
  Sender: FDA-Public Use
  Company Number: US-JNJFOC-20031200137

PATIENT
  Sex: Female
  Weight: 57.15 kg

DRUGS (6)
  1. TOPAMAX [Suspect]
     Route: 049
  2. CYANOCOBALAMIN [Concomitant]
     Route: 065
  3. MULTIVITAMIN [Concomitant]
     Route: 065
  4. DARVOCET [Concomitant]
     Route: 065
  5. DARVOCET [Concomitant]
     Indication: PAIN
     Dosage: PRN FOR PAIN
     Route: 065
  6. ATIVAN [Concomitant]

REACTIONS (11)
  - CATARACT [None]
  - CONSTIPATION [None]
  - DEAFNESS [None]
  - HYPOAESTHESIA [None]
  - INSOMNIA [None]
  - MEMORY IMPAIRMENT [None]
  - NERVOUSNESS [None]
  - PARAESTHESIA [None]
  - RASH [None]
  - VISION BLURRED [None]
  - WEIGHT DECREASED [None]
